FAERS Safety Report 10304270 (Version 3)
Quarter: 2014Q3

REPORT INFORMATION
  Report Type: Spontaneous
  Country: BR (occurrence: BR)
  Receive Date: 20140714
  Receipt Date: 20140722
  Transmission Date: 20150326
  Serious: Yes (Other)
  Sender: FDA-Public Use
  Company Number: PHHY2014BR084266

PATIENT
  Age: 60 Year
  Sex: Male
  Weight: 110 kg

DRUGS (3)
  1. GLIFAGE [Concomitant]
     Active Substance: METFORMIN HYDROCHLORIDE
     Indication: DIABETES MELLITUS
     Dosage: 100 MG, 2 DF, DAILY
  2. DOXAZOSIN SANDOZ URO RETARD [Suspect]
     Active Substance: DOXAZOSIN MESYLATE
     Indication: BENIGN PROSTATIC HYPERPLASIA
     Dosage: 4 MG, QD
     Route: 048
     Dates: start: 201406, end: 20140630
  3. TENOLAT [Concomitant]
     Indication: HYPERTENSION
     Dosage: 100 MG, QD

REACTIONS (4)
  - Micturition urgency [Recovering/Resolving]
  - Micturition disorder [Recovering/Resolving]
  - Urine output decreased [Recovering/Resolving]
  - Pollakiuria [Recovering/Resolving]

NARRATIVE: CASE EVENT DATE: 201406
